FAERS Safety Report 13272870 (Version 1)
Quarter: 2017Q1

REPORT INFORMATION
  Report Type: Spontaneous
  Country: US (occurrence: US)
  Receive Date: 20170224
  Receipt Date: 20170224
  Transmission Date: 20170428
  Serious: No
  Sender: FDA-Public Use
  Company Number: None

PATIENT
  Age: 56 Year
  Sex: Male

DRUGS (1)
  1. HUMIRA [Suspect]
     Active Substance: ADALIMUMAB
     Indication: MYOCARDITIS
     Dosage: 40MG EVERY 14 DAYS SQ
     Route: 058
     Dates: start: 20161213

REACTIONS (4)
  - Infection [None]
  - Pulmonary oedema [None]
  - Nasopharyngitis [None]
  - Night sweats [None]

NARRATIVE: CASE EVENT DATE: 20161228
